FAERS Safety Report 13863892 (Version 2)
Quarter: 2018Q1

REPORT INFORMATION
  Report Type: Spontaneous
  Country: JP (occurrence: JP)
  Receive Date: 20170814
  Receipt Date: 20180320
  Transmission Date: 20180508
  Serious: Yes (Death)
  Sender: FDA-Public Use
  Company Number: JP-CIPLA LTD.-2017JP13682

PATIENT

DRUGS (4)
  1. CISPLATIN. [Suspect]
     Active Substance: CISPLATIN
     Indication: SQUAMOUS CELL CARCINOMA
     Dosage: 5 MG/M2, PER DAY
     Route: 065
  2. IRINOTECAN [Suspect]
     Active Substance: IRINOTECAN
     Indication: SQUAMOUS CELL CARCINOMA
     Dosage: 60 MG/M2, DAYS 1 AND 15,AT 4-WEEK INTERVALS
     Route: 065
  3. IRINOTECAN [Suspect]
     Active Substance: IRINOTECAN
     Indication: SMALL CELL CARCINOMA
  4. CISPLATIN. [Suspect]
     Active Substance: CISPLATIN
     Indication: SMALL CELL CARCINOMA
     Dosage: 30 MG/M2, DAYS 1 AND 15
     Route: 065

REACTIONS (2)
  - Metastases to liver [Fatal]
  - Metastases to bone [Fatal]
